FAERS Safety Report 7909532-2 (Version None)
Quarter: 2011Q4

REPORT INFORMATION
  Report Type: 
  Country: None (occurrence: None)
  Receive Date: 20111111
  Receipt Date: 20111103
  Transmission Date: 20120403
  Serious: Yes (Other)
  Sender: FDA-Public Use
  Company Number: US-JNJFOC-20111102910

PATIENT
  Sex: Male

DRUGS (6)
  1. RITUXIMAB [Suspect]
     Indication: NON-HODGKIN'S LYMPHOMA
     Route: 042
  2. PREDNISONE TAB [Suspect]
     Indication: NON-HODGKIN'S LYMPHOMA
     Route: 065
  3. DOXORUBICIN HCL [Suspect]
     Indication: NON-HODGKIN'S LYMPHOMA
     Route: 042
  4. VINCRISTINE [Suspect]
     Indication: NON-HODGKIN'S LYMPHOMA
     Route: 065
  5. CYCLOPHOSPHAMIDE [Suspect]
     Indication: NON-HODGKIN'S LYMPHOMA
     Route: 065
  6. LEUKINE [Suspect]
     Indication: NON-HODGKIN'S LYMPHOMA
     Route: 058

REACTIONS (1)
  - PLEURAL EFFUSION [None]
